FAERS Safety Report 23352107 (Version 3)
Quarter: 2024Q1

REPORT INFORMATION
  Report Type: Spontaneous
  Country: PT (occurrence: PT)
  Receive Date: 20231229
  Receipt Date: 20240130
  Transmission Date: 20240409
  Serious: Yes (Hospitalization, Other)
  Sender: FDA-Public Use
  Company Number: PT-TAKEDA-2023TUS124305

PATIENT
  Age: 42 Year
  Sex: Female

DRUGS (2)
  1. PONATINIB [Suspect]
     Active Substance: PONATINIB
     Indication: Philadelphia positive acute lymphocytic leukaemia
     Dosage: 45 MILLIGRAM
     Route: 065
  2. PONATINIB [Suspect]
     Active Substance: PONATINIB
     Dosage: 30 MILLIGRAM
     Route: 065

REACTIONS (5)
  - Pneumonitis [Recovered/Resolved]
  - Respiratory failure [Unknown]
  - Acute respiratory distress syndrome [Unknown]
  - Hypertension [Unknown]
  - Pericardial effusion [Unknown]
